FAERS Safety Report 6719771-4 (Version None)
Quarter: 2010Q2

REPORT INFORMATION
  Report Type: 
  Country: None (occurrence: None)
  Receive Date: 20100510
  Receipt Date: 20100510
  Transmission Date: 20101027
  Serious: Yes (Disabling, Other)
  Sender: FDA-Public Use
  Company Number: None

PATIENT
  Age: 26 Year
  Sex: Female
  Weight: 64.4108 kg

DRUGS (1)
  1. MIRENA [Suspect]
     Indication: CONTRACEPTION
     Dosage: CONTINUOUS INTRA-UTERINE
     Route: 015
     Dates: start: 20100416, end: 20100512

REACTIONS (5)
  - COMPLICATION OF DEVICE INSERTION [None]
  - DEVICE DISLOCATION [None]
  - PAIN [None]
  - UTERINE HYPERTONUS [None]
  - VAGINAL HAEMORRHAGE [None]
